FAERS Safety Report 5140079-5 (Version None)
Quarter: 2006Q4

REPORT INFORMATION
  Report Type: 
  Country: None (occurrence: None)
  Receive Date: 20061031
  Receipt Date: 20061019
  Transmission Date: 20070319
  Serious: Yes (Hospitalization)
  Sender: FDA-Public Use
  Company Number: PHNR2006AU01421

PATIENT
  Sex: Female

DRUGS (1)
  1. VOLTAREN [Suspect]
     Dosage: 2 TABLETS, ONCE/SINGLE
     Route: 048
     Dates: start: 20000101

REACTIONS (3)
  - CIRCULATORY COLLAPSE [None]
  - COMA [None]
  - MALAISE [None]
